FAERS Safety Report 21357692 (Version 3)
Quarter: 2024Q1

REPORT INFORMATION
  Report Type: Spontaneous
  Country: SI (occurrence: None)
  Receive Date: 20220921
  Receipt Date: 20240123
  Transmission Date: 20240410
  Serious: Yes (Death, Hospitalization, Other)
  Sender: FDA-Public Use
  Company Number: SI-ROCHE-3081943

PATIENT
  Age: 48 Year
  Sex: Female

DRUGS (2)
  1. GAVRETO [Suspect]
     Active Substance: PRALSETINIB
     Indication: Non-small cell lung cancer
     Dosage: THERAPY DISCONTINUATION IN APRIL AND REINTRODUCED ON 5TH MAY WITH 50 % REDUCED DOSE
     Route: 048
  2. GAVRETO [Suspect]
     Active Substance: PRALSETINIB
     Indication: Non-small cell lung cancer

REACTIONS (13)
  - Fatigue [Unknown]
  - Haemoglobin decreased [Unknown]
  - Hepatic enzyme increased [Unknown]
  - Transaminases increased [Unknown]
  - Cytopenia [Unknown]
  - Sensory disturbance [Unknown]
  - Pleural effusion [Unknown]
  - Pericardial effusion [Unknown]
  - Disease progression [Fatal]
  - Embolism [Unknown]
  - Cardiac arrest [Unknown]
  - Lymphadenopathy mediastinal [Unknown]
  - Peripheral ischaemia [Unknown]

NARRATIVE: CASE EVENT DATE: 20220401
